FAERS Safety Report 24985629 (Version 1)
Quarter: 2025Q1

REPORT INFORMATION
  Report Type: Report from Study
  Country: SA (occurrence: SA)
  Receive Date: 20250219
  Receipt Date: 20250219
  Transmission Date: 20250408
  Serious: Yes (Other)
  Sender: NOVARTIS
  Company Number: SA-002147023-NVSC2025SA028071

PATIENT
  Age: 46 Year
  Sex: Female

DRUGS (1)
  1. LEQVIO [Suspect]
     Active Substance: INCLISIRAN SODIUM
     Indication: Hypercholesterolaemia
     Route: 058
     Dates: start: 20250205

REACTIONS (6)
  - Myositis [Not Recovered/Not Resolved]
  - Osteitis [Not Recovered/Not Resolved]
  - Neuritis [Not Recovered/Not Resolved]
  - Alopecia [Not Recovered/Not Resolved]
  - Pain [Unknown]
  - Neuralgia [Unknown]

NARRATIVE: CASE EVENT DATE: 20250207
